FAERS Safety Report 8823283 (Version 1)
Quarter: 2012Q4

REPORT INFORMATION
  Report Type: 
  Country: PT (occurrence: PT)
  Receive Date: 20121003
  Receipt Date: 20121003
  Transmission Date: 20130627
  Serious: Yes (Life-Threatening)
  Sender: FDA-Public Use
  Company Number: PT-TEVA-361503ISR

PATIENT
  Age: 48 Year
  Sex: Female

DRUGS (13)
  1. EPIRRUBICINA [Suspect]
     Indication: BREAST CANCER
     Route: 042
     Dates: start: 20120829, end: 20120829
  2. ONDANSETRON HYDROCHLORIDE DIHYDRATE [Concomitant]
     Indication: VOMITING
     Route: 042
     Dates: start: 20120829, end: 20120829
  3. DIMECROTIC [Concomitant]
  4. BROMAZEPAM [Concomitant]
  5. DOMPERIDONE [Concomitant]
  6. NIMESULIDE [Concomitant]
  7. FLUOXETINE [Concomitant]
  8. OMEPRAZOLE [Concomitant]
  9. OMEPRAZOLE [Concomitant]
  10. DIAZEPAM [Concomitant]
  11. CYCLOPHOSPHAMIDE [Concomitant]
  12. DEXAMETHASONE [Concomitant]
     Dates: start: 20120829, end: 20120829
  13. FLUOROURACIL [Concomitant]
     Dates: start: 20120829

REACTIONS (4)
  - Hypertension [Recovered/Resolved]
  - Injection site papule [Recovered/Resolved]
  - Dizziness [Recovered/Resolved]
  - Face oedema [Recovered/Resolved]
